FAERS Safety Report 5173686-4 (Version None)
Quarter: 2006Q4

REPORT INFORMATION
  Report Type: 
  Country: None (occurrence: None)
  Receive Date: 20061214
  Receipt Date: 20061003
  Transmission Date: 20070319
  Serious: No
  Sender: FDA-Public Use
  Company Number: US-AMGEN-US195744

PATIENT
  Sex: Female

DRUGS (3)
  1. ENBREL [Suspect]
     Indication: RHEUMATOID ARTHRITIS
     Route: 058
     Dates: start: 20040726
  2. ARAVA [Concomitant]
     Route: 048
     Dates: start: 20040101
  3. PLAQUENIL [Concomitant]
     Route: 048
     Dates: start: 19960101

REACTIONS (3)
  - BRONCHITIS [None]
  - INJECTION SITE REACTION [None]
  - SINUSITIS [None]
